FAERS Safety Report 7883142-8 (Version None)
Quarter: 2011Q4

REPORT INFORMATION
  Report Type: 
  Country: None (occurrence: None)
  Receive Date: 20111102
  Receipt Date: 20111027
  Transmission Date: 20120403
  Serious: No
  Sender: FDA-Public Use
  Company Number: US-BIOGENIDEC-2011BI041035

PATIENT
  Sex: Female

DRUGS (2)
  1. PROVIGIL [Concomitant]
     Indication: CONFUSIONAL STATE
  2. AVONEX [Suspect]
     Indication: MULTIPLE SCLEROSIS
     Route: 030
     Dates: start: 20081120

REACTIONS (19)
  - DRY MOUTH [None]
  - EYE PAIN [None]
  - MUSCULOSKELETAL DISORDER [None]
  - MULTIPLE SCLEROSIS RELAPSE [None]
  - DEPRESSION [None]
  - PAIN IN EXTREMITY [None]
  - INCORRECT DRUG DOSAGE FORM ADMINISTERED [None]
  - TOOTH FRACTURE [None]
  - CONSTIPATION [None]
  - MULTIPLE SCLEROSIS [None]
  - PAIN [None]
  - CIRCADIAN RHYTHM SLEEP DISORDER [None]
  - BRADYKINESIA [None]
  - HYPERTENSION [None]
  - BLOOD PRESSURE ABNORMAL [None]
  - CRYING [None]
  - STRESS [None]
  - ARTHRALGIA [None]
  - MUSCULOSKELETAL PAIN [None]
